FAERS Safety Report 15488578 (Version 3)
Quarter: 2019Q2

REPORT INFORMATION
  Report Type: Spontaneous
  Country: CN (occurrence: CN)
  Receive Date: 20181011
  Receipt Date: 20190605
  Transmission Date: 20190711
  Serious: Yes (Other)
  Sender: FDA-Public Use
  Company Number: CN-PFIZER INC-2018404366

PATIENT
  Age: 83 Year
  Sex: Male

DRUGS (12)
  1. LINEZOLID. [Concomitant]
     Active Substance: LINEZOLID
     Indication: STAPHYLOCOCCAL INFECTION
  2. LINEZOLID. [Suspect]
     Active Substance: LINEZOLID
     Indication: EMPYEMA
     Dosage: 600 MG, 2X/DAY
     Route: 048
  3. CEFTRIAXONE. [Concomitant]
     Active Substance: CEFTRIAXONE
     Indication: PLEURAL EFFUSION
  4. PIPERACILLIN/TAZOBACTAM [Concomitant]
     Active Substance: PIPERACILLIN SODIUM\TAZOBACTAM SODIUM
     Indication: PLEURAL EFFUSION
  5. CEFTRIAXONE. [Concomitant]
     Active Substance: CEFTRIAXONE
     Indication: PNEUMONIA
     Dosage: UNK
  6. BIAPENEM [Concomitant]
     Active Substance: BIAPENEM
     Indication: PLEURAL EFFUSION
  7. LINEZOLID. [Concomitant]
     Active Substance: LINEZOLID
     Indication: EMPYEMA
     Dosage: 600 MG, 2X/DAY
     Route: 042
  8. GENTAMICIN. [Concomitant]
     Active Substance: GENTAMICIN
     Indication: PNEUMONIA
     Dosage: UNK
  9. GENTAMICIN. [Concomitant]
     Active Substance: GENTAMICIN
     Indication: PLEURAL EFFUSION
  10. PIPERACILLIN/TAZOBACTAM [Concomitant]
     Active Substance: PIPERACILLIN SODIUM\TAZOBACTAM SODIUM
     Indication: PNEUMONIA
     Dosage: UNK
  11. LINEZOLID. [Suspect]
     Active Substance: LINEZOLID
     Indication: PNEUMONIA
  12. BIAPENEM [Concomitant]
     Active Substance: BIAPENEM
     Indication: PNEUMONIA
     Dosage: UNK

REACTIONS (3)
  - Anaemia [Recovering/Resolving]
  - Aplasia pure red cell [Recovered/Resolved]
  - Condition aggravated [Recovering/Resolving]
